FAERS Safety Report 8108711-1 (Version None)
Quarter: 2012Q1

REPORT INFORMATION
  Report Type: 
  Country: None (occurrence: None)
  Receive Date: 20120202
  Receipt Date: 20120103
  Transmission Date: 20120608
  Serious: No
  Sender: FDA-Public Use
  Company Number: US-AMGEN-USASP2011062671

PATIENT
  Age: 10 Year
  Sex: Female
  Weight: 59 kg

DRUGS (2)
  1. METHOTREXATE [Concomitant]
     Dosage: 10 MG, UNK
     Dates: start: 20111020
  2. ENBREL [Suspect]
     Indication: JUVENILE ARTHRITIS
     Dosage: 25 MG, QWK
     Route: 058
     Dates: start: 20111001

REACTIONS (2)
  - EPISTAXIS [None]
  - UPPER RESPIRATORY TRACT INFECTION [None]
